FAERS Safety Report 4907467-0 (Version None)
Quarter: 2006Q1

REPORT INFORMATION
  Report Type: 
  Country: None (occurrence: None)
  Receive Date: 20060210
  Receipt Date: 20050930
  Transmission Date: 20060701
  Serious: Yes (Hospitalization, Other)
  Sender: FDA-Public Use
  Company Number: US-MERCK-0510USA01137

PATIENT
  Age: 56 Year
  Sex: Female
  Weight: 55 kg

DRUGS (1)
  1. VIOXX [Suspect]
     Indication: ARTHRALGIA
     Route: 048
     Dates: start: 20000512, end: 20010109

REACTIONS (9)
  - ANGIOPATHY [None]
  - CEREBROVASCULAR ACCIDENT [None]
  - LIMB DISCOMFORT [None]
  - MYOCARDIAL INFARCTION [None]
  - NASAL CONGESTION [None]
  - ORGAN FAILURE [None]
  - PULMONARY CONGESTION [None]
  - PULMONARY EMBOLISM [None]
  - THROMBOSIS [None]
